FAERS Safety Report 7772270-3 (Version None)
Quarter: 2011Q3

REPORT INFORMATION
  Report Type: 
  Country: None (occurrence: None)
  Receive Date: 20110922
  Receipt Date: 20100809
  Transmission Date: 20111222
  Serious: No
  Sender: FDA-Public Use
  Company Number: US-ASTRAZENECA-2010SE37146

PATIENT
  Sex: Male

DRUGS (3)
  1. REMERON [Concomitant]
     Indication: DEPRESSION
  2. SEROQUEL [Suspect]
     Indication: DEPRESSION
     Route: 048
  3. ATIVAN [Concomitant]
     Indication: ANXIETY

REACTIONS (3)
  - DEPRESSION [None]
  - OFF LABEL USE [None]
  - ABNORMAL BEHAVIOUR [None]
